FAERS Safety Report 25523232 (Version 1)
Quarter: 2025Q3

REPORT INFORMATION
  Report Type: Spontaneous
  Country: EU (occurrence: EU)
  Receive Date: 20250707
  Receipt Date: 20250707
  Transmission Date: 20251021
  Serious: Yes (Hospitalization, Other)
  Sender: CELLTRION
  Company Number: EU-ROCHE-10000209488

PATIENT

DRUGS (2)
  1. RITUXIMAB [Suspect]
     Active Substance: RITUXIMAB
     Indication: Product used for unknown indication
     Route: 065
  2. TYSABRI [Suspect]
     Active Substance: NATALIZUMAB
     Indication: Product used for unknown indication
     Route: 065

REACTIONS (7)
  - CSF oligoclonal band present [Unknown]
  - Infection [Unknown]
  - Spinal disorder [Unknown]
  - Anti-aquaporin-4 antibody positive [Unknown]
  - Pleocytosis [Unknown]
  - Disease progression [Unknown]
  - Maternal exposure before pregnancy [Unknown]
